FAERS Safety Report 18497748 (Version 2)
Quarter: 2020Q4

REPORT INFORMATION
  Report Type: Spontaneous
  Country: EG (occurrence: EG)
  Receive Date: 20201112
  Receipt Date: 20201125
  Transmission Date: 20210114
  Serious: Yes (Other)
  Sender: FDA-Public Use
  Company Number: EG-ABBVIE-20K-048-3649193-00

PATIENT
  Age: 54 Year
  Sex: Male

DRUGS (2)
  1. IBRUTINIB [Suspect]
     Active Substance: IBRUTINIB
     Indication: CHRONIC LYMPHOCYTIC LEUKAEMIA
     Route: 048
     Dates: start: 202007
  2. IBRUTINIB [Suspect]
     Active Substance: IBRUTINIB
     Route: 048

REACTIONS (4)
  - Neutropenia [Recovering/Resolving]
  - Scrotal infection [Recovering/Resolving]
  - Haematotoxicity [Recovering/Resolving]
  - Herpes zoster [Recovering/Resolving]
